FAERS Safety Report 7914635-2 (Version None)
Quarter: 2011Q4

REPORT INFORMATION
  Report Type: 
  Country: None (occurrence: None)
  Receive Date: 20111115
  Receipt Date: 20111108
  Transmission Date: 20120403
  Serious: Yes (Other)
  Sender: FDA-Public Use
  Company Number: PHHY2011CA099489

PATIENT

DRUGS (2)
  1. ALISKIREN [Suspect]
     Dosage: UNK
  2. BETA BLOCKING AGENTS [Concomitant]

REACTIONS (2)
  - WEIGHT DECREASED [None]
  - BLOOD PRESSURE DECREASED [None]
